FAERS Safety Report 6197444-7 (Version None)
Quarter: 2009Q2

REPORT INFORMATION
  Report Type: 
  Country: None (occurrence: None)
  Receive Date: 20090518
  Receipt Date: 20090505
  Transmission Date: 20091009
  Serious: Yes (Hospitalization, Other)
  Sender: FDA-Public Use
  Company Number: 234994K09USA

PATIENT
  Age: 52 Year
  Sex: Female

DRUGS (8)
  1. REBIF [Suspect]
     Indication: MULTIPLE SCLEROSIS
     Dosage: 44 MCG, 3 IN 1 WEEKS, SUBCUTANEOUS
     Route: 058
     Dates: start: 20080701
  2. BLOOD PRESSURE MEDICATION (ANTIHYPERTENSIVES) [Concomitant]
  3. NITRATE (GLYCERYL TRINITRATE) [Concomitant]
  4. ESTROGENIC SUBSTANCE [Concomitant]
  5. GABATRIL (TIAGABINE HYDROCHLORIDE) [Concomitant]
  6. KEPPRA [Concomitant]
  7. OPANA [Concomitant]
  8. HYDROCODONE (HYDROCODONE) [Concomitant]

REACTIONS (4)
  - CORONARY ARTERY OCCLUSION [None]
  - PAIN IN EXTREMITY [None]
  - PERIPHERAL ARTERIAL OCCLUSIVE DISEASE [None]
  - PERIPHERAL COLDNESS [None]
